FAERS Safety Report 21610755 (Version 3)
Quarter: 2022Q4

REPORT INFORMATION
  Report Type: Report from Study
  Country: ES (occurrence: None)
  Receive Date: 20221117
  Receipt Date: 20221124
  Transmission Date: 20230112
  Serious: Yes (Hospitalization)
  Sender: FDA-Public Use
  Company Number: ES-ROCHE-3214739

PATIENT
  Age: 37 Year
  Sex: Male
  Weight: 83.9 kg

DRUGS (32)
  1. INTERFERON BETA-1A [Suspect]
     Active Substance: INTERFERON BETA-1A
     Indication: Relapsing-remitting multiple sclerosis
     Route: 058
     Dates: start: 20130301, end: 20130327
  2. OCRELIZUMAB [Suspect]
     Active Substance: OCRELIZUMAB
     Indication: Relapsing-remitting multiple sclerosis
     Dosage: SHE RECEIVED SUBSEQUENT DOSE ON 05/FEB/2015 (OLE WEEK 2).
     Route: 042
     Dates: start: 20150121, end: 20150121
  3. OCRELIZUMAB [Suspect]
     Active Substance: OCRELIZUMAB
     Dosage: SHE RECEIVED SUBSEQUENT DOSE ON 23/DEC/2015 (OLE WEEK 48), 08/JUN/2016 (OLE WEEK 72), 23/NOV/2016 (O
     Route: 042
     Dates: start: 20150714, end: 20150714
  4. PLACEBO [Suspect]
     Active Substance: UNSPECIFIED INGREDIENT
     Indication: Relapsing-remitting multiple sclerosis
     Dosage: SHE RECEIVED SUBSEQUENT DOSE ON 15/MAR/2013 (BASELINE WEEK 2)
     Route: 042
     Dates: start: 20130301, end: 20130301
  5. PLACEBO [Suspect]
     Active Substance: UNSPECIFIED INGREDIENT
     Dosage: SHE RECEIVED SUBSEQUENT DOSE ON 29/JAN/2014 (WEEK 48), 18/JUL/2014 (WEEK 72).
     Route: 042
     Dates: start: 20130814, end: 20130814
  6. ACETAMINOPHEN [Concomitant]
     Active Substance: ACETAMINOPHEN
     Dosage: 15/MAR/2013, 14/AUG/2013, 29/JAN/2014, 18/JUL/2014, 21/JAN/2015, 05/FEB/2015, 14/JUL/2015, 23/DEC/20
     Dates: start: 20130301
  7. POLARAMINE [Concomitant]
     Active Substance: DEXCHLORPHENIRAMINE MALEATE
     Dosage: 15/MAR/2013, 14/AUG/2013, 29/JAN/2014, 18/JUL/2014, 21/JAN/2015, 05/FEB/2015, 14/JUL/2015, 14/JUL/20
     Dates: start: 20130301
  8. METHYLPREDNISOLONE [Concomitant]
     Active Substance: METHYLPREDNISOLONE
     Dosage: 18/JUL/2014, 21/JAN/2015, 05/FEB/2015, 14/JUL/2015, 23/DEC/2015,  08/JUN/2016, 23/NOV/2016, 09/MAY/2
     Dates: start: 20130301, end: 20130301
  9. METHYLPREDNISOLONE [Concomitant]
     Active Substance: METHYLPREDNISOLONE
     Dates: start: 20130315, end: 20130315
  10. METHYLPREDNISOLONE [Concomitant]
     Active Substance: METHYLPREDNISOLONE
     Dates: start: 20130814, end: 20130814
  11. METHYLPREDNISOLONE [Concomitant]
     Active Substance: METHYLPREDNISOLONE
     Dates: start: 20140129, end: 20140129
  12. LEXATIN (SPAIN) [Concomitant]
     Indication: Anxiety
     Dates: start: 20140325
  13. BUDESONIDE [Concomitant]
     Active Substance: BUDESONIDE
     Indication: Asthma
     Dates: start: 20160520
  14. DEFLAZACORT [Concomitant]
     Active Substance: DEFLAZACORT
     Indication: Asthma
     Dates: start: 20160520
  15. AMOXICILLIN [Concomitant]
     Active Substance: AMOXICILLIN
     Indication: Viral infection
     Dates: start: 20160518
  16. AZITHROMYCIN [Concomitant]
     Active Substance: AZITHROMYCIN
     Indication: COVID-19
     Dates: start: 20200329
  17. METAMIZOLE [Concomitant]
     Active Substance: METAMIZOLE
     Indication: COVID-19
     Dates: start: 20200329
  18. OMEPRAZOLE [Concomitant]
     Active Substance: OMEPRAZOLE
     Indication: COVID-19
     Dates: start: 20200329
  19. CEFTRIAXONE [Concomitant]
     Active Substance: CEFTRIAXONE
     Dates: start: 20200401
  20. PIPERACILLIN SODIUM\TAZOBACTAM SODIUM [Concomitant]
     Active Substance: PIPERACILLIN SODIUM\TAZOBACTAM SODIUM
     Indication: COVID-19
     Dates: start: 20200407
  21. METHYLPREDNISOLONE [Concomitant]
     Active Substance: METHYLPREDNISOLONE
     Indication: COVID-19
     Dates: start: 20200410
  22. SULFAMETHOXAZOLE\TRIMETHOPRIM [Concomitant]
     Active Substance: SULFAMETHOXAZOLE\TRIMETHOPRIM
     Indication: COVID-19
     Dates: start: 20200413
  23. MASTICAL D [Concomitant]
     Indication: COVID-19
     Dates: start: 20200430
  24. HYDROXYCHLOROQUINE [Concomitant]
     Active Substance: HYDROXYCHLOROQUINE
     Indication: COVID-19
     Dates: start: 20200329
  25. ACETAMINOPHEN [Concomitant]
     Active Substance: ACETAMINOPHEN
     Indication: Gastroenteritis
     Dates: start: 20130823
  26. ACETAMINOPHEN [Concomitant]
     Active Substance: ACETAMINOPHEN
     Dates: start: 20221102
  27. HYDROCORTISONE SODIUM PHOSPHATE [Concomitant]
     Active Substance: HYDROCORTISONE SODIUM PHOSPHATE
     Indication: Infusion related reaction
     Dates: start: 20150121
  28. METHYLPREDNISOLONE [Concomitant]
     Active Substance: METHYLPREDNISOLONE
     Indication: Pneumonia
     Dosage: 27/OCT/2022
     Dates: start: 20131205
  29. NASONEX [Concomitant]
     Active Substance: MOMETASONE FUROATE
     Indication: Rhinitis
  30. RILAST (SPAIN) [Concomitant]
  31. TERBUTALINE SULFATE [Concomitant]
     Active Substance: TERBUTALINE SULFATE
  32. ALBUTEROL [Concomitant]
     Active Substance: ALBUTEROL
     Dates: start: 20221103

REACTIONS (1)
  - Pneumonia [Recovered/Resolved]

NARRATIVE: CASE EVENT DATE: 20221015
